FAERS Safety Report 4688649-2 (Version None)
Quarter: 2005Q2

REPORT INFORMATION
  Report Type: 
  Country: None (occurrence: None)
  Receive Date: 20050613
  Receipt Date: 20050531
  Transmission Date: 20051028
  Serious: Yes (Hospitalization)
  Sender: FDA-Public Use
  Company Number: 200511601JP

PATIENT
  Age: 69 Year
  Sex: Female
  Weight: 41.6 kg

DRUGS (4)
  1. ARAVA [Suspect]
     Indication: RHEUMATOID ARTHRITIS
     Route: 048
     Dates: start: 20031118, end: 20040327
  2. LOXONIN [Concomitant]
     Indication: PAIN
     Route: 048
  3. AZULFIDINE [Concomitant]
     Route: 048
     Dates: end: 20031118
  4. ALLOID [Concomitant]
     Route: 048
     Dates: start: 20031125, end: 20031216

REACTIONS (17)
  - BLOOD ALBUMIN DECREASED [None]
  - BLOOD CREATININE INCREASED [None]
  - BLOOD UREA INCREASED [None]
  - BRADYCARDIA [None]
  - C-REACTIVE PROTEIN INCREASED [None]
  - CONVULSION [None]
  - HAEMATOCRIT DECREASED [None]
  - HAEMOGLOBIN DECREASED [None]
  - HYPERTENSION [None]
  - LYMPHOCYTE PERCENTAGE DECREASED [None]
  - MONOCYTE PERCENTAGE DECREASED [None]
  - NEUTROPHIL PERCENTAGE INCREASED [None]
  - PLATELET COUNT INCREASED [None]
  - PROTEIN TOTAL DECREASED [None]
  - RETINAL HAEMORRHAGE [None]
  - SICK SINUS SYNDROME [None]
  - VISUAL ACUITY REDUCED [None]
